FAERS Safety Report 19440722 (Version 2)
Quarter: 2021Q2

REPORT INFORMATION
  Report Type: Report from Study
  Country: None (occurrence: FR)
  Receive Date: 20210621
  Receipt Date: 20210629
  Transmission Date: 20210717
  Serious: Yes (Hospitalization)
  Sender: FDA-Public Use
  Company Number: FR-ABBVIE-21K-056-3955339-00

PATIENT
  Age: 32 Year
  Sex: Male

DRUGS (1)
  1. SKYRIZI [Suspect]
     Active Substance: RISANKIZUMAB-RZAA
     Indication: PSORIASIS
     Route: 058
     Dates: start: 20210210

REACTIONS (4)
  - Pain in extremity [Recovered/Resolved]
  - Medical device discomfort [Recovered/Resolved]
  - Limb injury [Unknown]
  - Gout [Unknown]

NARRATIVE: CASE EVENT DATE: 2021
